FAERS Safety Report 24156398 (Version 3)
Quarter: 2024Q3

REPORT INFORMATION
  Report Type: Spontaneous
  Country: US (occurrence: US)
  Receive Date: 20240731
  Receipt Date: 20240815
  Transmission Date: 20241017
  Serious: Yes (Other)
  Sender: PFIZER
  Company Number: US-PFIZER INC-202400224968

PATIENT
  Age: 76 Year
  Sex: Female
  Weight: 102.06 kg

DRUGS (2)
  1. TIKOSYN [Suspect]
     Active Substance: DOFETILIDE
     Indication: Atrial fibrillation
     Dosage: 250 UG, 2X/DAY
     Dates: start: 202304
  2. TIKOSYN [Suspect]
     Active Substance: DOFETILIDE
     Indication: Cardiac failure

REACTIONS (2)
  - Coronary artery occlusion [Not Recovered/Not Resolved]
  - Confusional state [Unknown]
